FAERS Safety Report 8550933-X (Version None)
Quarter: 2012Q3

REPORT INFORMATION
  Report Type: 
  Country: None (occurrence: None)
  Receive Date: 20120730
  Receipt Date: 20120723
  Transmission Date: 20120928
  Serious: Yes (Death)
  Sender: FDA-Public Use
  Company Number: US-BRISTOL-MYERS SQUIBB COMPANY-16792947

PATIENT

DRUGS (2)
  1. CISPLATIN [Suspect]
     Indication: OESOPHAGEAL CARCINOMA
  2. FLUOROURACIL [Suspect]
     Indication: OESOPHAGEAL CARCINOMA

REACTIONS (1)
  - PULMONARY HAEMORRHAGE [None]
